FAERS Safety Report 25823882 (Version 1)
Quarter: 2025Q3

REPORT INFORMATION
  Report Type: Spontaneous
  Country: US (occurrence: US)
  Receive Date: 20250919
  Receipt Date: 20250919
  Transmission Date: 20251021
  Serious: No
  Sender: ANI
  Company Number: US-ANIPHARMA-2025-US-026450

PATIENT
  Sex: Male

DRUGS (11)
  1. CORTICOTROPIN [Suspect]
     Active Substance: CORTICOTROPIN
     Indication: Nephrotic syndrome
     Route: 058
  2. NORVASC [Concomitant]
     Active Substance: AMLODIPINE BESYLATE
  3. COENZYME Q10 [Concomitant]
     Active Substance: DIETARY SUPPLEMENT\UBIDECARENONE
  4. GEMFIBROZIL [Concomitant]
     Active Substance: GEMFIBROZIL
  5. ELIQUIS [Concomitant]
     Active Substance: APIXABAN
  6. VITAMINS [Concomitant]
     Active Substance: VITAMINS
  7. FISH OIL [Concomitant]
     Active Substance: FISH OIL
  8. ASPIRIN [Concomitant]
     Active Substance: ASPIRIN
  9. LOSARTAN POTASSIUM [Concomitant]
     Active Substance: LOSARTAN POTASSIUM
  10. JARDIANCE [Concomitant]
     Active Substance: EMPAGLIFLOZIN
  11. IRON [Concomitant]
     Active Substance: IRON

REACTIONS (1)
  - Weight increased [Unknown]
